FAERS Safety Report 6438668-0 (Version None)
Quarter: 2009Q4

REPORT INFORMATION
  Report Type: 
  Country: None (occurrence: None)
  Receive Date: 20091113
  Receipt Date: 20091105
  Transmission Date: 20100525
  Serious: Yes (Other)
  Sender: FDA-Public Use
  Company Number: US-ASTRAZENECA-2008UW27521

PATIENT
  Age: 48 Year
  Sex: Male
  Weight: 113.4 kg

DRUGS (1)
  1. SEROQUEL [Suspect]
     Indication: BIPOLAR DISORDER
     Route: 048
     Dates: start: 20050601

REACTIONS (2)
  - DIABETES MELLITUS [None]
  - KNEE ARTHROPLASTY [None]
